FAERS Safety Report 17532097 (Version 2)
Quarter: 2020Q1

REPORT INFORMATION
  Report Type: Spontaneous
  Country: US (occurrence: US)
  Receive Date: 20200311
  Receipt Date: 20200317
  Transmission Date: 20200409
  Serious: Yes (Death, Other)
  Sender: FDA-Public Use
  Company Number: US-TEVA-2020-US-1196137

PATIENT
  Sex: Male

DRUGS (1)
  1. PROAIR HFA [Suspect]
     Active Substance: ALBUTEROL SULFATE
     Route: 065

REACTIONS (5)
  - Death [Fatal]
  - Pulmonary oedema [Unknown]
  - Product packaging quantity issue [Unknown]
  - Dyspnoea [Unknown]
  - Drug delivery system malfunction [Unknown]
